FAERS Safety Report 10235435 (Version 1)
Quarter: 2014Q2

REPORT INFORMATION
  Report Type: Spontaneous
  Country: CN (occurrence: CN)
  Receive Date: 20140613
  Receipt Date: 20140613
  Transmission Date: 20141212
  Serious: Yes (Other)
  Sender: FDA-Public Use
  Company Number: CN-PFIZER INC-2014157945

PATIENT
  Age: 48 Year
  Sex: Female
  Weight: 62 kg

DRUGS (3)
  1. PHARMORUBICIN [Suspect]
     Indication: BREAST CANCER
     Dosage: 150 MG, 1X/DAY
     Route: 041
     Dates: start: 20130820, end: 20130823
  2. CYCLOPHOSPHAMIDE [Suspect]
     Indication: BREAST CANCER
     Dosage: 900 MG, 1X/DAY
     Route: 041
     Dates: start: 20130820, end: 20130823
  3. FLUOROURACIL [Suspect]
     Indication: BREAST CANCER
     Dosage: 750 MG, 1X/DAY
     Route: 041
     Dates: start: 20130820, end: 20130823

REACTIONS (3)
  - Aphagia [Recovering/Resolving]
  - Vomiting [Recovering/Resolving]
  - Nausea [Recovering/Resolving]
